FAERS Safety Report 4960814-6 (Version None)
Quarter: 2006Q1

REPORT INFORMATION
  Report Type: 
  Country: None (occurrence: None)
  Receive Date: 20060331
  Receipt Date: 20060331
  Transmission Date: 20060701
  Serious: Yes (Other)
  Sender: FDA-Public Use
  Company Number: None

PATIENT
  Age: 50 Year
  Sex: Male
  Weight: 83.9154 kg

DRUGS (1)
  1. NITROQUICK 0.4 MG TABLETS, KV PHARM FOR ETHEX CORP [Suspect]
     Indication: CHEST PAIN
     Dosage: 0.4 MG (ONE TABLET) EVERY 5 MINUTES SUBLINGUAL
     Route: 060
     Dates: start: 20060220

REACTIONS (6)
  - BURNING SENSATION [None]
  - DRUG INEFFECTIVE [None]
  - FLUSHING [None]
  - HEADACHE [None]
  - PHARMACEUTICAL PRODUCT COMPLAINT [None]
  - POOR QUALITY DRUG ADMINISTERED [None]
